FAERS Safety Report 7378092-X (Version None)
Quarter: 2011Q1

REPORT INFORMATION
  Report Type: 
  Country: None (occurrence: None)
  Receive Date: 20110328
  Receipt Date: 20110314
  Transmission Date: 20110831
  Serious: Yes (Hospitalization)
  Sender: FDA-Public Use
  Company Number: GR-CELGENEUS-066-C5013-08030103

PATIENT
  Sex: Female
  Weight: 60 kg

DRUGS (9)
  1. VITAMIN D [Concomitant]
     Route: 048
     Dates: start: 20080222
  2. MELPHALAN [Suspect]
     Dosage: .18 MILLIGRAM/KILOGRAM
     Route: 048
     Dates: start: 20080311
  3. PREDNISONE [Suspect]
     Indication: MULTIPLE MYELOMA
     Dosage: 120 MILLIGRAM
     Route: 048
     Dates: start: 20080205, end: 20080208
  4. LENALIDOMIDE [Suspect]
     Indication: MULTIPLE MYELOMA
     Dosage: 10 MILLIGRAM
     Route: 048
     Dates: start: 20080205, end: 20080226
  5. LENALIDOMIDE [Suspect]
     Dosage: 10 MILLIGRAM
     Route: 048
     Dates: start: 20080311
  6. ZOLEDRONIC ACID [Concomitant]
     Dosage: 4 MILLIGRAM
     Route: 065
     Dates: start: 20080205
  7. MELPHALAN [Suspect]
     Indication: MULTIPLE MYELOMA
     Dosage: 10 MILLIGRAM
     Route: 048
     Dates: start: 20080205, end: 20080208
  8. PREDNISONE [Suspect]
     Dosage: 2 MILLIGRAM/KILOGRAM
     Route: 048
     Dates: start: 20080311
  9. CA CO3 [Concomitant]
     Route: 048
     Dates: start: 20080222

REACTIONS (2)
  - HYPOCALCAEMIA [None]
  - CONVULSION [None]
